FAERS Safety Report 5153190-X (Version None)
Quarter: 2006Q4

REPORT INFORMATION
  Report Type: 
  Country: None (occurrence: None)
  Receive Date: 20061117
  Receipt Date: 20010412
  Transmission Date: 20070319
  Serious: Yes (Other)
  Sender: FDA-Public Use
  Company Number: CA-ROCHE-258672

PATIENT
  Age: 45 Year
  Sex: Female
  Weight: 68.4 kg

DRUGS (2)
  1. DACLIZUMAB [Suspect]
     Indication: PSORIASIS
     Dosage: DRUG TAKEN ON DAYS 0, 14, 28, 42 AND 56.
     Route: 042
  2. NEORAL [Suspect]
     Indication: PSORIASIS
     Dosage: 150 QAM, AND 125 MG HS.
     Route: 048
     Dates: start: 20001215

REACTIONS (1)
  - PYELONEPHRITIS [None]
